FAERS Safety Report 25430442 (Version 1)
Quarter: 2025Q2

REPORT INFORMATION
  Report Type: Spontaneous
  Country: DE (occurrence: DE)
  Receive Date: 20250612
  Receipt Date: 20250612
  Transmission Date: 20250717
  Serious: Yes (Other)
  Sender: MYLAN
  Company Number: DE-002147023-NVSC2025DE087573

PATIENT
  Sex: Male

DRUGS (3)
  1. CANDESARTAN [Suspect]
     Active Substance: CANDESARTAN
     Indication: Product used for unknown indication
  2. LUCENTIS [Suspect]
     Active Substance: RANIBIZUMAB
     Indication: Retinal vein occlusion
     Dosage: UNK UNK, BID (2X 2025)
  3. NEVANAC [Concomitant]
     Active Substance: NEPAFENAC
     Indication: Macular oedema
     Dosage: 1 DROP, QD (2-3X DAILY)
     Dates: start: 20250125

REACTIONS (2)
  - Renal impairment [Unknown]
  - Blood pressure abnormal [Unknown]
